FAERS Safety Report 4899604-1 (Version None)
Quarter: 2006Q1

REPORT INFORMATION
  Report Type: 
  Country: None (occurrence: None)
  Receive Date: 20060131
  Receipt Date: 20060117
  Transmission Date: 20060701
  Serious: Yes (Hospitalization)
  Sender: FDA-Public Use
  Company Number: CERZ-10121

PATIENT
  Age: 65 Year
  Sex: Male
  Weight: 95 kg

DRUGS (1)
  1. CEREZYME [Suspect]
     Indication: GAUCHER'S DISEASE
     Dosage: 5400 UNITS Q2WKS IV
     Route: 042
     Dates: start: 19970401

REACTIONS (3)
  - FALL [None]
  - FEMUR FRACTURE [None]
  - SURGICAL PROCEDURE REPEATED [None]
